FAERS Safety Report 24151072 (Version 1)
Quarter: 2024Q3

REPORT INFORMATION
  Report Type: Report from Study
  Country: CN (occurrence: CN)
  Receive Date: 20240730
  Receipt Date: 20240730
  Transmission Date: 20241017
  Serious: Yes (Other)
  Sender: RANBAXY
  Company Number: CN-SUN PHARMACEUTICAL INDUSTRIES LTD-2024R1-456001

PATIENT

DRUGS (2)
  1. PREDNISONE [Suspect]
     Active Substance: PREDNISONE
     Indication: Kaposiform haemangioendothelioma
     Dosage: 2 MICROGRAM/KILOGRAM
     Route: 065
  2. SIROLIMUS [Suspect]
     Active Substance: SIROLIMUS
     Indication: Kaposiform haemangioendothelioma
     Dosage: UNK
     Route: 048

REACTIONS (1)
  - Therapy partial responder [Unknown]
